FAERS Safety Report 4488143-8 (Version None)
Quarter: 2004Q4

REPORT INFORMATION
  Report Type: 
  Country: None (occurrence: None)
  Receive Date: 20041025
  Receipt Date: 20041012
  Transmission Date: 20050328
  Serious: Yes (Death)
  Sender: FDA-Public Use
  Company Number: JP-2004-033358

PATIENT
  Age: 79 Year
  Sex: Male
  Weight: 50 kg

DRUGS (7)
  1. FLUDARA [Suspect]
     Indication: CHRONIC LYMPHOCYTIC LEUKAEMIA
     Dosage: 19.5 MG, CYCLE X 5D; INTRAVENOUS (SEE IMAGE)
     Route: 042
     Dates: start: 20010319, end: 20010323
  2. FLUDARA [Suspect]
     Indication: CHRONIC LYMPHOCYTIC LEUKAEMIA
     Dosage: 19.5 MG, CYCLE X 5D; INTRAVENOUS (SEE IMAGE)
     Route: 042
     Dates: start: 20010514, end: 20010518
  3. FLUDARA [Suspect]
     Indication: CHRONIC LYMPHOCYTIC LEUKAEMIA
     Dosage: 19.5 MG, CYCLE X 5D; INTRAVENOUS (SEE IMAGE)
     Route: 042
     Dates: start: 20010822, end: 20010826
  4. FLUDARA [Suspect]
     Indication: CHRONIC LYMPHOCYTIC LEUKAEMIA
     Dosage: 19.5 MG, CYCLE X 5D; INTRAVENOUS (SEE IMAGE)
     Route: 042
     Dates: start: 20011116, end: 20011120
  5. FLUDARA [Suspect]
     Indication: CHRONIC LYMPHOCYTIC LEUKAEMIA
     Dosage: 19.5 MG, CYCLE X 5D; INTRAVENOUS (SEE IMAGE)
     Route: 042
     Dates: start: 20020515, end: 20020519
  6. FLUDARA [Suspect]
     Indication: CHRONIC LYMPHOCYTIC LEUKAEMIA
     Dosage: 19.5 MG, CYCLE X 5D; INTRAVENOUS (SEE IMAGE)
     Route: 042
     Dates: start: 20020820, end: 20020824
  7. PREDONINE [Concomitant]

REACTIONS (3)
  - HEPATOMEGALY [None]
  - LARGE INTESTINE CARCINOMA [None]
  - SPLENOMEGALY [None]
